FAERS Safety Report 5906950-9 (Version None)
Quarter: 2008Q4

REPORT INFORMATION
  Report Type: 
  Country: None (occurrence: None)
  Receive Date: 20081002
  Receipt Date: 20081002
  Transmission Date: 20090506
  Serious: Yes (Life-Threatening, Hospitalization, Other)
  Sender: FDA-Public Use
  Company Number: None

PATIENT
  Age: 45 Year
  Sex: Female
  Weight: 86.1834 kg

DRUGS (3)
  1. MEGACE [Suspect]
     Indication: BREAST CANCER
     Dosage: 1-2 PILLS  1-2 TIMES PER DAY PO
     Route: 048
     Dates: start: 19950129, end: 20050329
  2. MEGACE [Suspect]
     Indication: MENSTRUAL DISORDER
     Dosage: 1-2 PILLS  1-2 TIMES PER DAY PO
     Route: 048
     Dates: start: 19950129, end: 20050329
  3. MEGACE [Suspect]
     Indication: PROPHYLAXIS
     Dosage: 1-2 PILLS  1-2 TIMES PER DAY PO
     Route: 048
     Dates: start: 19950129, end: 20050329

REACTIONS (1)
  - MENINGIOMA [None]
